FAERS Safety Report 16284605 (Version 1)
Quarter: 2019Q2

REPORT INFORMATION
  Report Type: Spontaneous
  Country: US (occurrence: US)
  Receive Date: 20190508
  Receipt Date: 20190508
  Transmission Date: 20190711
  Serious: No
  Sender: FDA-Public Use
  Company Number: US-ASTRAZENECA-2019SE56529

PATIENT
  Age: 25643 Day
  Sex: Female
  Weight: 129.3 kg

DRUGS (1)
  1. BYETTA [Suspect]
     Active Substance: EXENATIDE
     Route: 065

REACTIONS (6)
  - Blood glucose decreased [Unknown]
  - Incorrect dose administered by device [Unknown]
  - Confusional state [Unknown]
  - Intentional product misuse [Unknown]
  - Product dose omission [Unknown]
  - Abdominal discomfort [Unknown]

NARRATIVE: CASE EVENT DATE: 20180524
